FAERS Safety Report 23306885 (Version 5)
Quarter: 2024Q2

REPORT INFORMATION
  Report Type: Spontaneous
  Country: JP (occurrence: JP)
  Receive Date: 20231218
  Receipt Date: 20240516
  Transmission Date: 20240715
  Serious: Yes (Death, Hospitalization, Other)
  Sender: FDA-Public Use
  Company Number: JP-ASTELLAS-2023JP013878

PATIENT
  Age: 75 Year
  Sex: Male

DRUGS (10)
  1. PADCEV [Suspect]
     Active Substance: ENFORTUMAB VEDOTIN-EJFV
     Indication: Metastatic carcinoma of the bladder
     Dosage: 1.25 MG/KG (90 MG), ONCE WEEKLY
     Route: 041
     Dates: start: 20231130, end: 20231207
  2. GEMCITABINE [Concomitant]
     Active Substance: GEMCITABINE
     Indication: Bladder cancer
     Dosage: UNK UNK, UNKNOWN FREQ., 4 COURSES
     Route: 065
     Dates: start: 20220414
  3. CISPLATIN [Concomitant]
     Active Substance: CISPLATIN
     Indication: Bladder cancer
     Dosage: UNK UNK, UNKNOWN FREQ., 4 COURSES
     Route: 065
     Dates: start: 20220414
  4. BAVENCIO [Concomitant]
     Active Substance: AVELUMAB
     Indication: Bladder cancer
     Dosage: UNK UNK, UNKNOWN FREQ.
     Route: 065
     Dates: start: 20221003
  5. ZOSYN [Concomitant]
     Active Substance: PIPERACILLIN SODIUM\TAZOBACTAM SODIUM
     Indication: Febrile neutropenia
     Route: 041
     Dates: start: 20231212, end: 20231212
  6. MEROPENEM [Concomitant]
     Active Substance: MEROPENEM
     Indication: Febrile neutropenia
     Route: 041
     Dates: start: 20231213, end: 20231223
  7. FILGRASTIM [Concomitant]
     Active Substance: FILGRASTIM
     Indication: Febrile neutropenia
     Route: 058
     Dates: start: 20231214, end: 20231223
  8. MICONAZOLE [Concomitant]
     Active Substance: MICONAZOLE
     Indication: Oral candidiasis
     Route: 050
     Dates: start: 20231215, end: 20231223
  9. MICONAZOLE [Concomitant]
     Active Substance: MICONAZOLE
     Indication: Stomatitis
  10. SODIUM GUALENATE MONOHYDRATE [Concomitant]
     Active Substance: SODIUM GUALENATE MONOHYDRATE
     Indication: Stomatitis
     Dosage: APPROPRIATE DOSE, UNKNOWN FREQ.
     Route: 049
     Dates: start: 20231220, end: 20231223

REACTIONS (6)
  - Febrile neutropenia [Fatal]
  - Hyperbilirubinaemia [Unknown]
  - Renal impairment [Unknown]
  - Oral candidiasis [Unknown]
  - Stomatitis [Unknown]
  - Bronchitis [Unknown]

NARRATIVE: CASE EVENT DATE: 20231212
